FAERS Safety Report 23320949 (Version 1)
Quarter: 2023Q4

REPORT INFORMATION
  Report Type: Spontaneous
  Country: US (occurrence: None)
  Receive Date: 20231219
  Receipt Date: 20231219
  Transmission Date: 20240110
  Serious: No
  Sender: FDA-Public Use
  Company Number: None

PATIENT
  Sex: Male

DRUGS (3)
  1. STIVARGA [Suspect]
     Active Substance: REGORAFENIB
     Indication: Gastrointestinal stromal tumour
     Dosage: 140MG ONCE DAILY FOR 21 DAYS ORAL?
     Route: 048
     Dates: start: 202311
  2. SUTENT [Concomitant]
     Active Substance: SUNITINIB MALATE
  3. SUNITINIB MALATE [Concomitant]
     Active Substance: SUNITINIB MALATE

REACTIONS (1)
  - Emergency care [None]
